FAERS Safety Report 5980388-0 (Version None)
Quarter: 2008Q4

REPORT INFORMATION
  Report Type: 
  Country: None (occurrence: None)
  Receive Date: 20081205
  Receipt Date: 20071112
  Transmission Date: 20090506
  Serious: No
  Sender: FDA-Public Use
  Company Number: A0693847A

PATIENT
  Age: 75 Year
  Sex: Female

DRUGS (1)
  1. COMMIT [Suspect]
     Dates: start: 20071109, end: 20071109

REACTIONS (2)
  - DIZZINESS [None]
  - INTENTIONAL DRUG MISUSE [None]
